FAERS Safety Report 8246301-0 (Version None)
Quarter: 2012Q1

REPORT INFORMATION
  Report Type: 
  Country: None (occurrence: None)
  Receive Date: 20120330
  Receipt Date: 20120326
  Transmission Date: 20120608
  Serious: Yes (Death)
  Sender: FDA-Public Use
  Company Number: JP-SANOFI-AVENTIS-2010SA065291

PATIENT
  Age: 68 Year
  Sex: Male
  Weight: 61 kg

DRUGS (12)
  1. CARVEDILOL [Concomitant]
     Indication: HYPERTENSION
     Route: 048
     Dates: start: 20081007
  2. ASPIRIN [Concomitant]
     Indication: THROMBOSIS PROPHYLAXIS
     Route: 048
     Dates: start: 20100604
  3. MICARDIS [Concomitant]
     Indication: HYPERTENSION
     Route: 048
  4. ATORVASTATIN CALCIUM [Concomitant]
     Route: 048
     Dates: start: 20081028
  5. ALLOID [Concomitant]
     Route: 048
     Dates: start: 20100604
  6. MUCOSTA [Concomitant]
     Indication: GASTRIC MUCOSAL LESION
     Route: 048
     Dates: start: 20100516
  7. LORAZEPAM [Concomitant]
     Indication: NEUROSIS
     Route: 048
     Dates: start: 20100604
  8. TAXOTERE [Suspect]
     Indication: OESOPHAGEAL CARCINOMA
     Route: 041
     Dates: start: 20100721, end: 20100721
  9. TAXOTERE [Suspect]
     Route: 041
     Dates: start: 20100818, end: 20100818
  10. LENDORMIN [Concomitant]
     Indication: INSOMNIA
     Route: 048
     Dates: start: 20100510
  11. LOXONIN [Concomitant]
     Indication: PAIN
     Route: 048
     Dates: start: 20100516
  12. AMARYL [Concomitant]
     Indication: DIABETES MELLITUS
     Route: 048
     Dates: start: 20081001

REACTIONS (2)
  - RESPIRATORY FAILURE [None]
  - INTERSTITIAL LUNG DISEASE [None]
